FAERS Safety Report 5701634-4 (Version None)
Quarter: 2008Q2

REPORT INFORMATION
  Report Type: 
  Country: None (occurrence: None)
  Receive Date: 20080409
  Receipt Date: 20080409
  Transmission Date: 20081010
  Serious: Yes (Hospitalization)
  Sender: FDA-Public Use
  Company Number: None

PATIENT
  Sex: Female
  Weight: 122.4712 kg

DRUGS (1)
  1. LYRICA [Suspect]
     Indication: PERONEAL NERVE INJURY
     Dosage: 1  2X DAY PO
     Route: 048
     Dates: start: 20080319, end: 20080321

REACTIONS (8)
  - AMNESIA [None]
  - DISORIENTATION [None]
  - DRUG HYPERSENSITIVITY [None]
  - DYSARTHRIA [None]
  - HYPERSOMNIA [None]
  - HYPOAESTHESIA [None]
  - HYPOAESTHESIA FACIAL [None]
  - PARAESTHESIA [None]
